FAERS Safety Report 15413102 (Version 2)
Quarter: 2018Q3

REPORT INFORMATION
  Report Type: Spontaneous
  Country: BR (occurrence: BR)
  Receive Date: 20180921
  Receipt Date: 20180926
  Transmission Date: 20181010
  Serious: No
  Sender: FDA-Public Use
  Company Number: BR-PFIZER INC-2018374403

PATIENT
  Sex: Female

DRUGS (3)
  1. LORAX [Suspect]
     Active Substance: LORAZEPAM
     Indication: INSOMNIA
     Dosage: TABLET STRENGTH 2 MG AT NIGHT
     Dates: start: 2003
  2. GALVUS [Concomitant]
     Active Substance: VILDAGLIPTIN
     Dosage: UNK
  3. ARADOIS [Concomitant]
     Active Substance: LOSARTAN POTASSIUM
     Dosage: UNK

REACTIONS (1)
  - Hypoacusis [Recovered/Resolved]

NARRATIVE: CASE EVENT DATE: 201808
